FAERS Safety Report 9562369 (Version 2)
Quarter: 2013Q4

REPORT INFORMATION
  Report Type: Spontaneous
  Country: US (occurrence: US)
  Receive Date: 20130927
  Receipt Date: 20131106
  Transmission Date: 20140711
  Serious: Yes (Other)
  Sender: FDA-Public Use
  Company Number: US-JNJFOC-20130913079

PATIENT
  Sex: Male
  Weight: 119.39 kg

DRUGS (7)
  1. ZYTIGA [Suspect]
     Indication: PRODUCT USED FOR UNKNOWN INDICATION
     Route: 048
  2. LOTREL [Concomitant]
     Dosage: DOSE 5-10 MG
     Route: 048
  3. PREDNISONE [Concomitant]
     Route: 048
  4. NEURONTIN [Concomitant]
     Route: 048
  5. DOXYCYCLINE HYCLATE [Concomitant]
     Route: 048
  6. ROCEPHIN [Concomitant]
     Route: 030
     Dates: start: 20130909, end: 20130909
  7. AUGMENTIN [Concomitant]
     Dosage: 875 AND 125 MG TABLET
     Route: 048
     Dates: start: 20130909, end: 20130919

REACTIONS (1)
  - Cellulitis [Recovering/Resolving]
